FAERS Safety Report 7789684-8 (Version None)
Quarter: 2011Q3

REPORT INFORMATION
  Report Type: 
  Country: None (occurrence: None)
  Receive Date: 20110930
  Receipt Date: 20110802
  Transmission Date: 20111222
  Serious: No
  Sender: FDA-Public Use
  Company Number: US-ASTRAZENECA-2011SE46089

PATIENT

DRUGS (1)
  1. ARIMIDEX [Suspect]
     Route: 048
     Dates: start: 20060101, end: 20110101

REACTIONS (6)
  - TREMOR [None]
  - MYALGIA [None]
  - FATIGUE [None]
  - ADVERSE EVENT [None]
  - DIZZINESS [None]
  - ARTHRALGIA [None]
